FAERS Safety Report 11292175 (Version 2)
Quarter: 2015Q4

REPORT INFORMATION
  Report Type: Spontaneous
  Country: US (occurrence: US)
  Receive Date: 20150722
  Receipt Date: 20151005
  Transmission Date: 20160304
  Serious: Yes (Hospitalization, Other)
  Sender: FDA-Public Use
  Company Number: US-PFIZER INC-2015241313

PATIENT
  Age: 56 Year
  Sex: Male

DRUGS (14)
  1. ANDRODERM [Suspect]
     Active Substance: TESTOSTERONE
     Indication: HORMONE REPLACEMENT THERAPY
  2. DEPO-TESTOSTERONE [Suspect]
     Active Substance: TESTOSTERONE CYPIONATE
     Indication: ASTHENIA
  3. DEPO-TESTOSTERONE [Suspect]
     Active Substance: TESTOSTERONE CYPIONATE
     Indication: HYPOGONADISM MALE
  4. ANDROGEL [Suspect]
     Active Substance: TESTOSTERONE
     Indication: HORMONE REPLACEMENT THERAPY
     Dosage: 2 DF, 1X/DAY (ONCE PER DAY)
     Route: 061
  5. MULTIVITAMINS [Concomitant]
     Active Substance: VITAMINS
     Indication: ROUTINE HEALTH MAINTENANCE
     Dosage: UNK
     Dates: start: 2010
  6. ANDROGEL [Suspect]
     Active Substance: TESTOSTERONE
     Indication: ASTHENIA
  7. ANDROGEL [Suspect]
     Active Substance: TESTOSTERONE
     Indication: BLOOD TESTOSTERONE DECREASED
  8. DEPO-TESTOSTERONE [Suspect]
     Active Substance: TESTOSTERONE CYPIONATE
     Indication: HORMONE REPLACEMENT THERAPY
     Dosage: UNK, BIMONTHLY
     Route: 030
     Dates: start: 20130501, end: 201407
  9. ANDROGEL [Suspect]
     Active Substance: TESTOSTERONE
     Indication: FATIGUE
     Dosage: UNK, DAILY
     Route: 061
     Dates: start: 201303, end: 201304
  10. ANDRODERM [Suspect]
     Active Substance: TESTOSTERONE
     Indication: ASTHENIA
     Dosage: 2 MG, UNK (ONE PATCH PER 24 HOUR PERIOD)
  11. ANDRODERM [Suspect]
     Active Substance: TESTOSTERONE
     Indication: BLOOD TESTOSTERONE DECREASED
     Dosage: UNK, DAILY (INTERMITTENT USE)
     Dates: start: 201301, end: 2015
  12. DEPO-TESTOSTERONE [Suspect]
     Active Substance: TESTOSTERONE CYPIONATE
     Indication: BLOOD TESTOSTERONE DECREASED
  13. DEPO-TESTOSTERONE [Suspect]
     Active Substance: TESTOSTERONE CYPIONATE
     Indication: FATIGUE
  14. ANDRODERM [Suspect]
     Active Substance: TESTOSTERONE
     Indication: FATIGUE
     Dosage: 4 MG, UNK (ONE PATCH PER 24 HOUR PERIOD)

REACTIONS (10)
  - Atrial fibrillation [Unknown]
  - Bradycardia [Unknown]
  - Palpitations [Unknown]
  - Supraventricular tachycardia [Unknown]
  - Acne cystic [Unknown]
  - Scar [Unknown]
  - Exercise tolerance decreased [Unknown]
  - Atrial flutter [Unknown]
  - Tachycardia [Unknown]
  - Hypertension [Unknown]

NARRATIVE: CASE EVENT DATE: 201305
